FAERS Safety Report 9892893 (Version 1)
Quarter: 2014Q1

REPORT INFORMATION
  Report Type: Spontaneous
  Country: IT (occurrence: IT)
  Receive Date: 20140213
  Receipt Date: 20140213
  Transmission Date: 20141002
  Serious: Yes (Other)
  Sender: FDA-Public Use
  Company Number: IT-009507513-1402ITA004666

PATIENT
  Age: 60 Year
  Sex: Female

DRUGS (2)
  1. LOSARTAN POTASSIUM [Suspect]
     Indication: HYPERTENSION
     Dosage: TOTAL DAILY DOSE 100MG, DAILY
     Route: 048
     Dates: start: 20130101, end: 20131203
  2. CARDURA [Suspect]
     Indication: HYPERTENSION
     Dosage: 2 MG, DAILY
     Route: 048
     Dates: start: 20131118, end: 20131203

REACTIONS (2)
  - Hypertensive crisis [Recovering/Resolving]
  - Drug ineffective [Recovering/Resolving]
